FAERS Safety Report 7747147-X (Version None)
Quarter: 2011Q3

REPORT INFORMATION
  Report Type: 
  Country: None (occurrence: None)
  Receive Date: 20110907
  Receipt Date: 20110826
  Transmission Date: 20111222
  Serious: Yes (Life-Threatening, Hospitalization, Other)
  Sender: FDA-Public Use
  Company Number: 2011HGS-002476

PATIENT
  Age: 23 Year
  Sex: Female

DRUGS (1)
  1. BENLYSTA [Suspect]
     Indication: SYSTEMIC LUPUS ERYTHEMATOSUS
     Dosage: 1 IN 14 D, INTRAVENOUS DRIP
     Route: 041
     Dates: start: 20110801, end: 20110815

REACTIONS (11)
  - TREMOR [None]
  - PSYCHOTIC DISORDER [None]
  - NIGHTMARE [None]
  - PANIC DISORDER [None]
  - MENTAL STATUS CHANGES [None]
  - SPEECH DISORDER [None]
  - CONFUSIONAL STATE [None]
  - FEAR [None]
  - DEPRESSION [None]
  - SUICIDAL IDEATION [None]
  - NOCTURNAL FEAR [None]
